FAERS Safety Report 15824688 (Version 2)
Quarter: 2019Q1

REPORT INFORMATION
  Report Type: Spontaneous
  Country: JP (occurrence: JP)
  Receive Date: 20190115
  Receipt Date: 20190207
  Transmission Date: 20190417
  Serious: Yes (Other)
  Sender: FDA-Public Use
  Company Number: JP-AMERIGEN PHARMACEUTICALS, INC-2018AMG000033

PATIENT

DRUGS (4)
  1. DEXAMETHASONE. [Suspect]
     Active Substance: DEXAMETHASONE
     Indication: PERITUMOURAL OEDEMA
     Dosage: 2 MG/DAY
     Route: 065
  2. TRIMETHOPRIM SULFAMETHOXAZOLE [Concomitant]
     Active Substance: SULFAMETHOXAZOLE\TRIMETHOPRIM
     Indication: PNEUMOCYSTIS JIROVECII PNEUMONIA
  3. TEMOZOLOMIDE UNKNOWN [Suspect]
     Active Substance: TEMOZOLOMIDE
     Indication: ANAPLASTIC OLIGODENDROGLIOMA
     Dosage: 75 MG/M2, OD
     Route: 065
     Dates: start: 20170404, end: 20170515
  4. TRIMETHOPRIM SULFAMETHOXAZOLE [Concomitant]
     Active Substance: SULFAMETHOXAZOLE\TRIMETHOPRIM
     Indication: PROPHYLAXIS
     Dosage: 80-400 MG ONCE A DAY
     Route: 065

REACTIONS (6)
  - Cytomegalovirus viraemia [Recovered/Resolved]
  - Pyrexia [Unknown]
  - Diarrhoea [Recovering/Resolving]
  - Abdominal pain [Unknown]
  - Viral haemorrhagic cystitis [Recovering/Resolving]
  - Lymphopenia [Recovering/Resolving]

NARRATIVE: CASE EVENT DATE: 201705
